FAERS Safety Report 9358118 (Version 9)
Quarter: 2017Q1

REPORT INFORMATION
  Report Type: Report from Study
  Country: AU (occurrence: AU)
  Receive Date: 20130620
  Receipt Date: 20170113
  Transmission Date: 20170429
  Serious: Yes (Hospitalization)
  Sender: FDA-Public Use
  Company Number: AU-ROCHE-1232796

PATIENT
  Age: 47 Year
  Sex: Female
  Weight: 60.9 kg

DRUGS (8)
  1. MICROLAX (AUSTRALIA) [Concomitant]
     Route: 065
     Dates: start: 20130610, end: 20130610
  2. FLEET ENEMA [Concomitant]
     Active Substance: SODIUM PHOSPHATE, DIBASIC\SODIUM PHOSPHATE, MONOBASIC
     Route: 065
     Dates: start: 20130611, end: 20130611
  3. GLYCERIN. [Concomitant]
     Active Substance: GLYCERIN
     Route: 065
     Dates: start: 20130610, end: 20130610
  4. PANTOPRAZOLE [Concomitant]
     Active Substance: PANTOPRAZOLE SODIUM
     Route: 065
     Dates: start: 20121228
  5. ZOFRAN [Concomitant]
     Active Substance: ONDANSETRON HYDROCHLORIDE
     Dosage: WAFERS
     Route: 065
     Dates: start: 20130530
  6. NILSTAT (AUSTRALIA) [Concomitant]
     Route: 065
     Dates: start: 20130610, end: 20130610
  7. AGAROL (AUSTRALIA) [Concomitant]
     Route: 065
     Dates: start: 20130613, end: 20130613
  8. TRASTUZUMAB EMTANSINE [Suspect]
     Active Substance: ADO-TRASTUZUMAB EMTANSINE
     Indication: HER-2 POSITIVE BREAST CANCER
     Dosage: DATE OF LAST DOSE PRIOR TO SAE: 30/MAY/2013.
     Route: 042
     Dates: start: 20130103, end: 20130613

REACTIONS (1)
  - Pulmonary alveolar haemorrhage [Recovering/Resolving]

NARRATIVE: CASE EVENT DATE: 20130519
